FAERS Safety Report 16494503 (Version 2)
Quarter: 2019Q3

REPORT INFORMATION
  Report Type: Spontaneous
  Country: US (occurrence: US)
  Receive Date: 20190628
  Receipt Date: 20190703
  Transmission Date: 20191004
  Serious: No
  Sender: FDA-Public Use
  Company Number: US-SA-2019SA173247

PATIENT
  Age: 55 Year
  Sex: Female

DRUGS (6)
  1. VICTOZA [Concomitant]
     Active Substance: LIRAGLUTIDE
     Dosage: UNK
  2. PRALUENT [Suspect]
     Active Substance: ALIROCUMAB
     Dosage: 150 MG, QOW
     Dates: start: 201901
  3. PRALUENT [Suspect]
     Active Substance: ALIROCUMAB
     Indication: BLOOD CHOLESTEROL
     Dosage: 75 MG, QOW
     Dates: start: 2016
  4. VICTOZA [Concomitant]
     Active Substance: LIRAGLUTIDE
  5. NOVOLOG [Concomitant]
     Active Substance: INSULIN ASPART
  6. RESTASIS [Concomitant]
     Active Substance: CYCLOSPORINE

REACTIONS (9)
  - Product dose omission [Unknown]
  - Middle insomnia [Unknown]
  - Injection site induration [Unknown]
  - Formication [Unknown]
  - Paraesthesia [Unknown]
  - Arthropod bite [Unknown]
  - Therapeutic response decreased [Unknown]
  - Injection site dryness [Unknown]
  - Injection site erythema [Unknown]

NARRATIVE: CASE EVENT DATE: 2016
